FAERS Safety Report 8506976-5 (Version None)
Quarter: 2012Q3

REPORT INFORMATION
  Report Type: 
  Country: None (occurrence: None)
  Receive Date: 20120712
  Receipt Date: 20120531
  Transmission Date: 20120928
  Serious: No
  Sender: FDA-Public Use
  Company Number: US-PFIZER INC-2012166281

PATIENT
  Sex: Female
  Weight: 77.11 kg

DRUGS (6)
  1. ULTRAM [Suspect]
     Indication: PAIN
     Dosage: 100 MG, UNK
     Route: 065
  2. IBUPROFEN [Suspect]
     Indication: PAIN
     Dosage: 2400 MG, UNK
     Route: 065
  3. AMBIEN [Concomitant]
     Indication: SLEEP DISORDER THERAPY
     Dosage: UNK
     Route: 065
  4. ACETAMINOPHEN [Suspect]
     Indication: PAIN
     Dosage: 3 MG, UNK
     Route: 065
  5. PROZAC [Concomitant]
     Indication: DEPRESSION
     Dosage: UNK
     Route: 065
  6. ALEVE [Suspect]
     Indication: PAIN
     Dosage: 440 MG ONCE EVERY 6 HOURS
     Route: 065

REACTIONS (2)
  - NAUSEA [None]
  - DYSPEPSIA [None]
